FAERS Safety Report 10255721 (Version 2)
Quarter: 2014Q3

REPORT INFORMATION
  Report Type: Spontaneous
  Country: US (occurrence: US)
  Receive Date: 20140624
  Receipt Date: 20140722
  Transmission Date: 20150326
  Serious: No
  Sender: FDA-Public Use
  Company Number: US-BAYER-2014-094805

PATIENT
  Sex: Female

DRUGS (3)
  1. BETAJECT LITE [Suspect]
     Active Substance: DEVICE
  2. BETASERON [Suspect]
     Active Substance: INTERFERON BETA-1B
  3. EXTAVIA [Suspect]
     Active Substance: INTERFERON BETA-1B

REACTIONS (2)
  - Injection site pain [None]
  - Injection site haemorrhage [None]
